FAERS Safety Report 5288193-8 (Version None)
Quarter: 2007Q1

REPORT INFORMATION
  Report Type: 
  Country: None (occurrence: None)
  Receive Date: 20070118
  Receipt Date: 20061018
  Transmission Date: 20070707
  Serious: Yes (Other)
  Sender: FDA-Public Use
  Company Number: HQWYE393720OCT06

PATIENT
  Age: 54 Year
  Sex: Male
  Weight: 86.25 kg

DRUGS (3)
  1. ADVIL PM [Suspect]
     Indication: INSOMNIA
     Dosage: 1 OR 2 CAPLETS X2, ORAL
     Route: 048
     Dates: start: 20061001, end: 20061016
  2. ADVIL PM [Suspect]
     Indication: PAIN
     Dosage: 1 OR 2 CAPLETS X2, ORAL
     Route: 048
     Dates: start: 20061001, end: 20061016
  3. ADVIL PM [Suspect]
     Dosage: UNK; ORAL
     Route: 048
     Dates: start: 20060101, end: 20060101

REACTIONS (1)
  - ABDOMINAL PAIN UPPER [None]
